FAERS Safety Report 10913368 (Version 1)
Quarter: 2015Q1

REPORT INFORMATION
  Report Type: Spontaneous
  Country: JP (occurrence: JP)
  Receive Date: 20150313
  Receipt Date: 20150313
  Transmission Date: 20150721
  Serious: Yes (Other)
  Sender: FDA-Public Use
  Company Number: JP-ABBVIE-15P-087-1351594-00

PATIENT
  Age: 59 Year
  Sex: Male
  Weight: 68 kg

DRUGS (2)
  1. TRICOR [Suspect]
     Active Substance: FENOFIBRATE
     Indication: WEIGHT INCREASED
     Route: 065
     Dates: start: 20141021, end: 20150117
  2. TRICOR [Suspect]
     Active Substance: FENOFIBRATE
     Indication: HYPERLIPIDAEMIA
     Route: 048
     Dates: start: 20150117, end: 20150127

REACTIONS (2)
  - Liver disorder [Recovering/Resolving]
  - Jaundice [Recovering/Resolving]

NARRATIVE: CASE EVENT DATE: 20150124
